FAERS Safety Report 16142499 (Version 1)
Quarter: 2019Q2

REPORT INFORMATION
  Report Type: Spontaneous
  Country: US (occurrence: US)
  Receive Date: 20190401
  Receipt Date: 20190401
  Transmission Date: 20190711
  Serious: Yes (Death)
  Sender: FDA-Public Use
  Company Number: US-FRESENIUS KABI-FK201903330

PATIENT
  Age: 49 Year
  Sex: Female

DRUGS (2)
  1. IMMUNOGLOBULINS NOS [Concomitant]
     Active Substance: IMMUNE GLOBULIN NOS
     Indication: ANTICOAGULANT THERAPY
     Dosage: UNKNOWN
     Route: 042
  2. HEPARIN (MANUFACTURER UNKNOWN) [Suspect]
     Active Substance: HEPARIN SODIUM
     Indication: ANTICOAGULANT THERAPY
     Dosage: UNKNOWN
     Route: 065

REACTIONS (1)
  - Cerebral haemorrhage [Fatal]
